FAERS Safety Report 7141356-9 (Version None)
Quarter: 2010Q4

REPORT INFORMATION
  Report Type: 
  Country: None (occurrence: None)
  Receive Date: 20101122
  Receipt Date: 20101110
  Transmission Date: 20110411
  Serious: Yes (Other)
  Sender: FDA-Public Use
  Company Number: 2010P1002533

PATIENT
  Age: 12 Year
  Sex: Male

DRUGS (1)
  1. SOLODYN [Suspect]
     Indication: ACNE
     Dosage: 80 MG, QD; PO
     Route: 048
     Dates: start: 20101109, end: 20101110

REACTIONS (2)
  - CONVULSION [None]
  - FALL [None]
